FAERS Safety Report 7320586-7 (Version None)
Quarter: 2011Q1

REPORT INFORMATION
  Report Type: 
  Country: None (occurrence: None)
  Receive Date: 20110228
  Receipt Date: 20110225
  Transmission Date: 20110831
  Serious: Yes (Congenital Anomaly, Other)
  Sender: FDA-Public Use
  Company Number: US-ABBOTT-10P-163-0690196-00

PATIENT
  Age: 33 Year
  Sex: Female

DRUGS (2)
  1. COMBIVIR [Suspect]
     Indication: ANTIRETROVIRAL THERAPY
     Dosage: 2 TABLETS/CAPSULES DAILY
     Route: 048
  2. KALETRA [Suspect]
     Indication: ANTIRETROVIRAL THERAPY
     Dosage: 4 TABLETS/CAPSULES DAILY
     Route: 048

REACTIONS (2)
  - PLACENTA ACCRETA [None]
  - PLACENTA PRAEVIA [None]
